FAERS Safety Report 13966789 (Version 1)
Quarter: 2017Q3

REPORT INFORMATION
  Report Type: Spontaneous
  Country: US (occurrence: UM)
  Receive Date: 20170913
  Receipt Date: 20170913
  Transmission Date: 20171128
  Serious: Yes (Hospitalization, Disabling)
  Sender: FDA-Public Use
  Company Number: None

PATIENT
  Sex: Female
  Weight: 81 kg

DRUGS (3)
  1. KEPPRAXR [Concomitant]
  2. LAMICTAL [Concomitant]
     Active Substance: LAMOTRIGINE
  3. VIMPAT [Suspect]
     Active Substance: LACOSAMIDE
     Indication: EPILEPSY
     Dosage: ?          QUANTITY:60 CAPSULE(S);?TWICE A DAY ORAL
     Route: 048
     Dates: start: 20151228, end: 20161228

REACTIONS (6)
  - Sepsis [None]
  - Skin fissures [None]
  - Product substitution issue [None]
  - Diarrhoea [None]
  - Tremor [None]
  - Chills [None]

NARRATIVE: CASE EVENT DATE: 20160201
